FAERS Safety Report 13891419 (Version 2)
Quarter: 2017Q4

REPORT INFORMATION
  Report Type: Spontaneous
  Country: US (occurrence: US)
  Receive Date: 20170822
  Receipt Date: 20171016
  Transmission Date: 20180320
  Serious: No
  Sender: FDA-Public Use
  Company Number: US-PFIZER INC-2017361113

PATIENT
  Age: 37 Year
  Sex: Female

DRUGS (2)
  1. EUCRISA [Suspect]
     Active Substance: CRISABOROLE
     Dosage: UNK UNK, 2X/DAY
     Route: 061
     Dates: start: 20170804, end: 20170814
  2. EUCRISA [Suspect]
     Active Substance: CRISABOROLE
     Dosage: UNK, 2X/DAY (BID X 2 WKS)
     Dates: start: 20170804, end: 20170818

REACTIONS (3)
  - Rash [Recovering/Resolving]
  - Skin exfoliation [Unknown]
  - Application site pruritus [Unknown]
